FAERS Safety Report 25832140 (Version 1)
Quarter: 2025Q3

REPORT INFORMATION
  Report Type: Spontaneous
  Country: US (occurrence: US)
  Receive Date: 20250922
  Receipt Date: 20250922
  Transmission Date: 20251020
  Serious: No
  Sender: ABBVIE
  Company Number: US-ABBVIE-6464133

PATIENT
  Age: 38 Year
  Sex: Male
  Weight: 65.317 kg

DRUGS (2)
  1. HUMIRA [Suspect]
     Active Substance: ADALIMUMAB
     Indication: Hidradenitis
     Route: 058
  2. RINVOQ [Suspect]
     Active Substance: UPADACITINIB
     Indication: Product used for unknown indication
     Route: 048

REACTIONS (8)
  - Decreased activity [Unknown]
  - Drug ineffective [Unknown]
  - Depression [Unknown]
  - Disability [Unknown]
  - Swelling [Unknown]
  - Pain [Unknown]
  - Asthenia [Unknown]
  - Drug ineffective for unapproved indication [Unknown]
